FAERS Safety Report 12823723 (Version 2)
Quarter: 2016Q4

REPORT INFORMATION
  Report Type: Report from Study
  Country: CL (occurrence: LK)
  Receive Date: 20161006
  Receipt Date: 20161011
  Transmission Date: 20170207
  Serious: Yes (Hospitalization)
  Sender: FDA-Public Use
  Company Number: LK-B.I. PHARMACEUTICALS,INC./RIDGEFIELD-2016-BI-61891BI

PATIENT
  Age: 37 Year
  Sex: Female
  Weight: 71.5 kg

DRUGS (1)
  1. TRASTUZUMAB [Suspect]
     Active Substance: TRASTUZUMAB
     Indication: BREAST CANCER METASTATIC
     Route: 042
     Dates: start: 20160915, end: 20160915

REACTIONS (1)
  - Cellulitis [Recovered/Resolved]

NARRATIVE: CASE EVENT DATE: 20160920
